FAERS Safety Report 4704066-0 (Version None)
Quarter: 2005Q2

REPORT INFORMATION
  Report Type: 
  Country: None (occurrence: None)
  Receive Date: 20050630
  Receipt Date: 20050621
  Transmission Date: 20051028
  Serious: Yes (Other)
  Sender: FDA-Public Use
  Company Number: PHEH2005US07058

PATIENT
  Age: 60 Year
  Sex: Female

DRUGS (3)
  1. ZOMETA [Suspect]
     Dosage: 4 MG EVERY 3-4 WEEKS
     Dates: end: 20050608
  2. HERCEPTIN [Concomitant]
  3. XELODA [Concomitant]

REACTIONS (2)
  - ASEPTIC NECROSIS BONE [None]
  - PAIN [None]
